FAERS Safety Report 15572975 (Version 4)
Quarter: 2019Q1

REPORT INFORMATION
  Report Type: Spontaneous
  Country: US (occurrence: US)
  Receive Date: 20181031
  Receipt Date: 20190102
  Transmission Date: 20190417
  Serious: Yes (Hospitalization)
  Sender: FDA-Public Use
  Company Number: US-SA-2018SA297415

PATIENT
  Age: 41 Year
  Sex: Female

DRUGS (2)
  1. ADMELOG [Suspect]
     Active Substance: INSULIN LISPRO
     Indication: TYPE 1 DIABETES MELLITUS
     Dosage: UNKPATIENT WAS PRESCRIBED TO USE 20 UNITS PER MEAL BUT SHE TOOK 15 TO 20 UNITS EACH TIME
     Route: 065
     Dates: start: 20181007
  2. NOVOLOG [Concomitant]
     Active Substance: INSULIN ASPART
     Dosage: UNK
     Dates: start: 20181006

REACTIONS (8)
  - Blood glucose increased [Unknown]
  - Intentional product use issue [Unknown]
  - Malaise [Unknown]
  - Hyperhidrosis [Unknown]
  - Hyperglycaemia [Not Recovered/Not Resolved]
  - Dysphagia [Unknown]
  - Vomiting [Unknown]
  - Feeling abnormal [Unknown]

NARRATIVE: CASE EVENT DATE: 20181007
